FAERS Safety Report 21856993 (Version 1)
Quarter: 2023Q1

REPORT INFORMATION
  Report Type: Spontaneous
  Country: CH (occurrence: CH)
  Receive Date: 20230113
  Receipt Date: 20230113
  Transmission Date: 20230417
  Serious: Yes (Hospitalization)
  Sender: FDA-Public Use
  Company Number: None

PATIENT
  Age: 55 Year
  Sex: Male

DRUGS (5)
  1. HUMIRA [Suspect]
     Active Substance: ADALIMUMAB
     Dosage: DOSE INTERVAL SHORTENED TO 10 DAYS IN JULY/AUGUST 2022)
     Route: 058
     Dates: start: 2022, end: 20221106
  2. HUMIRA [Suspect]
     Active Substance: ADALIMUMAB
     Indication: Crohn^s disease
     Dosage: 80 MG
     Route: 058
     Dates: start: 2017
  3. SAXENDA [Suspect]
     Active Substance: LIRAGLUTIDE
     Indication: Product used for unknown indication
     Dosage: 3 MG
     Route: 058
     Dates: start: 20220522, end: 20221115
  4. HYDROCHLOROTHIAZIDE\IRBESARTAN [Concomitant]
     Active Substance: HYDROCHLOROTHIAZIDE\IRBESARTAN
     Indication: Hypertension
     Dosage: ? CAP./D (WHICH IS 75/6.25 MG).CONTINUING.
     Route: 048
  5. CITALOPRAM [Concomitant]
     Active Substance: CITALOPRAM HYDROBROMIDE
     Indication: Anxiety disorder
     Dosage: 10 MG
     Route: 048

REACTIONS (3)
  - Diplopia [Recovered/Resolved]
  - Encephalitis [Recovering/Resolving]
  - Anterograde amnesia [Recovering/Resolving]

NARRATIVE: CASE EVENT DATE: 20220816
